FAERS Safety Report 18866947 (Version 1)
Quarter: 2021Q1

REPORT INFORMATION
  Report Type: Spontaneous
  Country: NL (occurrence: NL)
  Receive Date: 20210208
  Receipt Date: 20210208
  Transmission Date: 20210420
  Serious: Yes (Hospitalization)
  Sender: FDA-Public Use
  Company Number: NL-MICRO LABS LIMITED-ML2021-00344

PATIENT
  Sex: Female

DRUGS (9)
  1. IMIPRAMINE [Suspect]
     Active Substance: IMIPRAMINE
  2. LORAZEPAM. [Suspect]
     Active Substance: LORAZEPAM
  3. CLOMIPRAMINE [Suspect]
     Active Substance: CLOMIPRAMINE
  4. THEOPHYLLINE [Suspect]
     Active Substance: THEOPHYLLINE ANHYDROUS
  5. PARACETAMOL [Suspect]
     Active Substance: ACETAMINOPHEN
  6. CAFFEINE CITRATE. [Suspect]
     Active Substance: CAFFEINE CITRATE
  7. QUETIAPINE. [Suspect]
     Active Substance: QUETIAPINE
  8. LIDOCAINE. [Suspect]
     Active Substance: LIDOCAINE
  9. CHLORPROMAZINE. [Suspect]
     Active Substance: CHLORPROMAZINE

REACTIONS (2)
  - Poisoning [Unknown]
  - Depressed level of consciousness [Unknown]
